FAERS Safety Report 4742657-1 (Version None)
Quarter: 2005Q3

REPORT INFORMATION
  Report Type: 
  Country: None (occurrence: None)
  Receive Date: 20050808
  Receipt Date: 20050727
  Transmission Date: 20060218
  Serious: Yes (Death, Hospitalization, Other)
  Sender: FDA-Public Use
  Company Number: USA0507102853

PATIENT
  Age: 80 Year
  Sex: Female

DRUGS (3)
  1. FORTEO [Suspect]
     Dates: start: 20050712, end: 20050713
  2. KADIAN [Concomitant]
  3. MORPHINE SULFATE [Concomitant]

REACTIONS (7)
  - ANOREXIA [None]
  - CONFUSIONAL STATE [None]
  - DIVERTICULITIS OESOPHAGEAL [None]
  - DYSPNOEA [None]
  - FLUID INTAKE REDUCED [None]
  - HALLUCINATION [None]
  - NAUSEA [None]
